FAERS Safety Report 4571132-2 (Version None)
Quarter: 2005Q1

REPORT INFORMATION
  Report Type: 
  Country: None (occurrence: None)
  Receive Date: 20050202
  Receipt Date: 20050118
  Transmission Date: 20050727
  Serious: Yes (Death)
  Sender: FDA-Public Use
  Company Number: 2004242559GB

PATIENT
  Age: 58 Year
  Weight: 165.4 kg

DRUGS (6)
  1. DOXORUBICIN HCL [Suspect]
     Indication: ADENOCARCINOMA
     Dosage: 65 MG (SINGLE), INTRAVENOUS
     Route: 042
     Dates: start: 20041001
  2. CYCLOPHOSPHAMIDE [Suspect]
     Indication: ADENOCARCINOMA
     Dosage: 1230 MG (SINGLE), INTRAVENOUS
     Route: 042
     Dates: start: 20041001
  3. PIP/TAZO (PIPERACILLIN SODIUM, TAZOBACTAM SODIUM) [Concomitant]
  4. GENTAMICIN [Concomitant]
  5. VINCRISTINE SULFATE [Suspect]
     Indication: ADENOCARCINOMA
     Dosage: 2 MG (SINGLE), INTRAVENOUS
     Route: 042
     Dates: start: 20041001
  6. FILGRASTIM (FILGRASTIM) [Concomitant]

REACTIONS (2)
  - MULTI-ORGAN FAILURE [None]
  - NEUTROPENIC SEPSIS [None]
